FAERS Safety Report 23016013 (Version 1)
Quarter: 2023Q4

REPORT INFORMATION
  Report Type: Spontaneous
  Country: TW (occurrence: TW)
  Receive Date: 20231002
  Receipt Date: 20231002
  Transmission Date: 20240109
  Serious: Yes (Life-Threatening, Hospitalization)
  Sender: FDA-Public Use
  Company Number: TW-BIOXCEL THERAPEUTICS, INC.-2023BIX00028

PATIENT
  Age: 61 Year
  Sex: Female

DRUGS (2)
  1. DEXMEDETOMIDINE [Suspect]
     Active Substance: DEXMEDETOMIDINE
  2. SCOPOLAMINE [Concomitant]
     Active Substance: SCOPOLAMINE

REACTIONS (5)
  - Depressed level of consciousness [Recovered/Resolved]
  - Bradycardia [Recovered/Resolved]
  - Hypothermia [Recovered/Resolved]
  - Toxicity to various agents [Recovered/Resolved]
  - Miosis [Recovered/Resolved]
